FAERS Safety Report 7166439-9 (Version None)
Quarter: 2010Q4

REPORT INFORMATION
  Report Type: 
  Country: None (occurrence: None)
  Receive Date: 20101216
  Receipt Date: 20101206
  Transmission Date: 20110411
  Serious: Yes (Other)
  Sender: FDA-Public Use
  Company Number: PHHY2010IN82949

PATIENT
  Age: 70 Year
  Sex: Female

DRUGS (3)
  1. ACLASTA [Suspect]
     Dosage: 5 MG/100 ML
     Route: 042
  2. CALCITRIOL [Concomitant]
  3. CALCIUM CITRATE [Concomitant]

REACTIONS (4)
  - GASTRITIS [None]
  - MALAISE [None]
  - NAUSEA [None]
  - PYREXIA [None]
